FAERS Safety Report 4474977-2 (Version None)
Quarter: 2004Q3

REPORT INFORMATION
  Report Type: 
  Country: None (occurrence: None)
  Receive Date: 20040923
  Receipt Date: 20040629
  Transmission Date: 20050211
  Serious: No
  Sender: FDA-Public Use
  Company Number: USA040671300

PATIENT
  Age: 80 Year
  Sex: Female

DRUGS (16)
  1. SYNTHROID [Concomitant]
  2. FOSAMAX [Concomitant]
  3. TOPROL-XL [Concomitant]
  4. NORVASC [Concomitant]
  5. LIPITOR [Concomitant]
  6. PREVIDENT (SODIUM FLUORIDE) [Concomitant]
  7. FORTEO [Suspect]
     Indication: OSTEOPOROSIS
  8. NITROLINGUAL-PUMPSPRAY (GLYCERYL TRINITRATE) [Concomitant]
  9. DALMANE [Concomitant]
  10. LORAZEPAM [Concomitant]
  11. LUTEIN [Concomitant]
  12. FIBERCON (POLYCARBOPHIL CALCIUM) [Concomitant]
  13. CALCIUM GLUCONATE [Concomitant]
  14. VITAMIN D [Concomitant]
  15. MULTI-VITAMIN [Concomitant]
  16. EVISTA [Suspect]

REACTIONS (4)
  - CARDIAC OPERATION [None]
  - CONTUSION [None]
  - DRUG INEFFECTIVE [None]
  - SURGERY [None]
